FAERS Safety Report 10917288 (Version 1)
Quarter: 2015Q1

REPORT INFORMATION
  Report Type: Spontaneous
  Country: DE (occurrence: DE)
  Receive Date: 20150316
  Receipt Date: 20150316
  Transmission Date: 20150721
  Serious: Yes (Other)
  Sender: FDA-Public Use
  Company Number: GXKR2015DE000977

PATIENT

DRUGS (1)
  1. GABAPENTIN 1A PHARMA [Suspect]
     Active Substance: GABAPENTIN
     Indication: NEURALGIA
     Dosage: 2X300 MG EVERY 2 HOURS
     Route: 048
     Dates: start: 20150202, end: 20150202

REACTIONS (7)
  - Hypoxia [Recovered/Resolved]
  - Stomatitis [Unknown]
  - Drug ineffective [Unknown]
  - Local swelling [Unknown]
  - Haematoma [Unknown]
  - Dizziness [Recovered/Resolved]
  - Drug dose titration not performed [Unknown]
